FAERS Safety Report 10059704 (Version 1)
Quarter: 2014Q2

REPORT INFORMATION
  Report Type: Spontaneous
  Country: US (occurrence: US)
  Receive Date: 20140404
  Receipt Date: 20140404
  Transmission Date: 20141212
  Serious: No
  Sender: FDA-Public Use
  Company Number: US-GLAXOSMITHKLINE-A1037310A

PATIENT
  Age: 49 Year
  Sex: Female

DRUGS (2)
  1. ALLI [Suspect]
     Indication: WEIGHT DECREASED
     Dates: start: 201308, end: 20130810
  2. UNSPECIFIED MEDICATION [Concomitant]

REACTIONS (1)
  - Abdominal pain [Not Recovered/Not Resolved]
